FAERS Safety Report 14740103 (Version 7)
Quarter: 2021Q1

REPORT INFORMATION
  Report Type: Spontaneous
  Country: US (occurrence: US)
  Receive Date: 20180410
  Receipt Date: 20210201
  Transmission Date: 20210419
  Serious: Yes (Other)
  Sender: FDA-Public Use
  Company Number: PHEH2018US013731

PATIENT
  Age: 26 Year
  Sex: Female
  Weight: 65.77 kg

DRUGS (2)
  1. ZOFRAN [Suspect]
     Active Substance: ONDANSETRON HYDROCHLORIDE
     Indication: MORNING SICKNESS
     Dosage: 8 MG, Q8H
     Route: 048
     Dates: start: 20140524, end: 20141214
  2. ZOFRAN [Suspect]
     Active Substance: ONDANSETRON HYDROCHLORIDE
     Indication: MORNING SICKNESS
     Dosage: 4 MG, UNK
     Route: 042
     Dates: start: 20140521, end: 20141214

REACTIONS (21)
  - Asthma [Unknown]
  - Gestational hypertension [Unknown]
  - Pulmonary valve incompetence [Unknown]
  - Maternal exposure during pregnancy [Unknown]
  - Insomnia [Unknown]
  - Premature delivery [Unknown]
  - Cough [Unknown]
  - Urinary tract infection [Unknown]
  - Nasal congestion [Unknown]
  - Sneezing [Unknown]
  - Shoulder dystocia [Unknown]
  - Bronchitis [Unknown]
  - Dyspnoea [Unknown]
  - Pre-eclampsia [Unknown]
  - Proteinuria [Unknown]
  - Seasonal allergy [Unknown]
  - Complication of pregnancy [Unknown]
  - Injury [Unknown]
  - Headache [Unknown]
  - Acute sinusitis [Unknown]
  - Product use in unapproved indication [Unknown]

NARRATIVE: CASE EVENT DATE: 20141214
